FAERS Safety Report 9899531 (Version 2)
Quarter: 2014Q1

REPORT INFORMATION
  Report Type: Spontaneous
  Country: FR (occurrence: FR)
  Receive Date: 20140214
  Receipt Date: 20140303
  Transmission Date: 20141002
  Serious: Yes (Life-Threatening, Hospitalization, Other)
  Sender: FDA-Public Use
  Company Number: FR-PFIZER INC-2014038075

PATIENT
  Age: 75 Year
  Sex: Male

DRUGS (5)
  1. ARACYTINE [Suspect]
     Indication: ACUTE MYELOID LEUKAEMIA
     Dosage: UNK
     Route: 042
     Dates: start: 20131204, end: 201312
  2. ARACYTINE [Suspect]
     Dosage: UNK
     Route: 042
     Dates: start: 20131207, end: 20131216
  3. OMIX [Concomitant]
     Dosage: UNK
  4. TAREG [Concomitant]
     Dosage: UNK
  5. PLAVIX [Concomitant]
     Dosage: UNK
     Dates: end: 20131126

REACTIONS (8)
  - Bone marrow failure [Not Recovered/Not Resolved]
  - Proctitis haemorrhagic [Unknown]
  - Hyperthermia [Unknown]
  - Erysipelas [Unknown]
  - Erythema [Unknown]
  - Pain in extremity [Unknown]
  - Oedema peripheral [Unknown]
  - Rash maculo-papular [Recovering/Resolving]
